FAERS Safety Report 8180571-2 (Version None)
Quarter: 2012Q1

REPORT INFORMATION
  Report Type: 
  Country: None (occurrence: None)
  Receive Date: 20120301
  Receipt Date: 20120211
  Transmission Date: 20120608
  Serious: Yes (Disabling, Other)
  Sender: FDA-Public Use
  Company Number: 2012031001

PATIENT
  Sex: Female

DRUGS (1)
  1. HIZENTRA [Suspect]
     Indication: IMMUNODEFICIENCY
     Dosage: (2.5 ML 1X/WEEK, 2.5 ML SUBCUTANEOUS)
     Route: 058
     Dates: start: 20120131

REACTIONS (6)
  - MUSCLE SPASTICITY [None]
  - FATIGUE [None]
  - MYOCLONUS [None]
  - HEADACHE [None]
  - TREMOR [None]
  - MUSCLE SPASMS [None]
